FAERS Safety Report 5044237-X (Version None)
Quarter: 2006Q3

REPORT INFORMATION
  Report Type: 
  Country: None (occurrence: None)
  Receive Date: 20060706
  Receipt Date: 20060626
  Transmission Date: 20061208
  Serious: Yes (Hospitalization)
  Sender: FDA-Public Use
  Company Number: DE-BRISTOL-MYERS SQUIBB COMPANY-13432158

PATIENT
  Age: 53 Year
  Sex: Female

DRUGS (4)
  1. ERBITUX [Suspect]
     Indication: OESOPHAGEAL SQUAMOUS CELL CARCINOMA
     Dosage: 1ST DOSE: 20SEP2005
     Route: 041
     Dates: start: 20051221, end: 20051221
  2. CISPLATIN [Suspect]
     Indication: OESOPHAGEAL SQUAMOUS CELL CARCINOMA
     Dosage: 1ST DOSE: 20SEP05
     Route: 042
     Dates: start: 20051221, end: 20051221
  3. FOLINIC ACID [Suspect]
     Indication: OESOPHAGEAL SQUAMOUS CELL CARCINOMA
     Dosage: 1ST DOSE: 20SEP05
     Route: 042
     Dates: start: 20051221, end: 20051221
  4. FLUOROURACIL [Suspect]
     Indication: OESOPHAGEAL SQUAMOUS CELL CARCINOMA
     Dosage: 1ST DOSE: 20SEP05
     Route: 042
     Dates: start: 20051221, end: 20051221

REACTIONS (1)
  - SIMPLE PARTIAL SEIZURES [None]
